FAERS Safety Report 13150818 (Version 1)
Quarter: 2017Q1

REPORT INFORMATION
  Report Type: Spontaneous
  Country: US (occurrence: US)
  Receive Date: 20170125
  Receipt Date: 20170125
  Transmission Date: 20170428
  Serious: Yes (Other)
  Sender: FDA-Public Use
  Company Number: US-JNJFOC-20170115386

PATIENT
  Sex: Male
  Weight: 75 kg

DRUGS (11)
  1. XARELTO [Suspect]
     Active Substance: RIVAROXABAN
     Indication: PRODUCT USED FOR UNKNOWN INDICATION
     Route: 048
  2. VITAMIN D3 [Concomitant]
     Active Substance: CHOLECALCIFEROL
     Dosage: 1000 UNITS
     Route: 048
  3. CHRONULAC [Concomitant]
     Active Substance: LACTULOSE
     Route: 048
  4. CRESTOR [Concomitant]
     Active Substance: ROSUVASTATIN CALCIUM
     Dosage: EVERY MORNING
     Route: 048
  5. AVODART [Concomitant]
     Active Substance: DUTASTERIDE
     Dosage: EVERY NIGHT BED TIME
     Route: 048
  6. XARELTO [Suspect]
     Active Substance: RIVAROXABAN
     Indication: PRODUCT USED FOR UNKNOWN INDICATION
     Route: 048
  7. LASIX [Concomitant]
     Active Substance: FUROSEMIDE
     Route: 048
  8. NORMODYNE [Concomitant]
     Active Substance: LABETALOL HYDROCHLORIDE
     Route: 048
  9. ACETYLSALICYLIC ACID [Suspect]
     Active Substance: ASPIRIN
     Indication: PRODUCT USED FOR UNKNOWN INDICATION
     Route: 065
  10. FLOMAX [Concomitant]
     Active Substance: TAMSULOSIN HYDROCHLORIDE
     Dosage: EVERY MORNING
     Route: 048
  11. MICARDIS [Concomitant]
     Active Substance: TELMISARTAN
     Route: 048

REACTIONS (4)
  - Renal cyst [Unknown]
  - Pulmonary embolism [Unknown]
  - Cor pulmonale acute [Recovering/Resolving]
  - Haematoma [Unknown]
